FAERS Safety Report 5113350-0 (Version None)
Quarter: 2006Q3

REPORT INFORMATION
  Report Type: 
  Country: None (occurrence: None)
  Receive Date: 20060920
  Receipt Date: 20060911
  Transmission Date: 20061208
  Serious: Yes (Hospitalization, Other)
  Sender: FDA-Public Use
  Company Number: 2006110599

PATIENT
  Age: 78 Year
  Sex: Female
  Weight: 49.8957 kg

DRUGS (4)
  1. FRAGMIN [Suspect]
     Indication: ANTICOAGULANT THERAPY
     Dates: start: 20060902, end: 20060905
  2. LEVOXYL [Concomitant]
  3. ZOCOR [Concomitant]
  4. NEXIUM [Suspect]

REACTIONS (2)
  - HAEMOGLOBIN DECREASED [None]
  - HAEMORRHAGE [None]
